FAERS Safety Report 17111532 (Version 1)
Quarter: 2019Q4

REPORT INFORMATION
  Report Type: Spontaneous
  Country: BR (occurrence: BR)
  Receive Date: 20191204
  Receipt Date: 20191204
  Transmission Date: 20200122
  Serious: Yes (Other)
  Sender: FDA-Public Use
  Company Number: BR-ABBVIE-19K-020-3177593-00

PATIENT
  Sex: Female
  Weight: 62 kg

DRUGS (10)
  1. RIVOTRIL [Suspect]
     Active Substance: CLONAZEPAM
     Route: 048
  2. RIVOTRIL [Suspect]
     Active Substance: CLONAZEPAM
     Route: 048
  3. DONAREN [Concomitant]
     Active Substance: TRAZODONE HYDROCHLORIDE
     Indication: PRODUCT SUBSTITUTION
     Route: 048
     Dates: start: 20191126
  4. DONAREN [Concomitant]
     Active Substance: TRAZODONE HYDROCHLORIDE
     Indication: SLEEP DISORDER THERAPY
  5. METHOTREXATE. [Concomitant]
     Active Substance: METHOTREXATE
     Indication: RHEUMATIC DISORDER
     Route: 048
     Dates: start: 2018
  6. RIVOTRIL [Suspect]
     Active Substance: CLONAZEPAM
     Indication: SLEEP DISORDER THERAPY
     Route: 048
     Dates: start: 1999
  7. DESVENLAFAXINE. [Concomitant]
     Active Substance: DESVENLAFAXINE
     Indication: ANTIDEPRESSANT THERAPY
     Route: 048
     Dates: start: 2015
  8. HUMIRA [Suspect]
     Active Substance: ADALIMUMAB
     Route: 058
  9. HUMIRA [Suspect]
     Active Substance: ADALIMUMAB
     Indication: ANKYLOSING SPONDYLITIS
     Route: 058
  10. GABAPENTIN. [Concomitant]
     Active Substance: GABAPENTIN
     Indication: PAIN
     Route: 048
     Dates: start: 201907

REACTIONS (10)
  - Alopecia [Unknown]
  - Injection site pruritus [Unknown]
  - Injection site erythema [Unknown]
  - Immunodeficiency [Unknown]
  - Spinal pain [Unknown]
  - Asthenia [Unknown]
  - Anxiety [Unknown]
  - Pain [Unknown]
  - Herpes zoster [Unknown]
  - Hypersensitivity [Unknown]
